FAERS Safety Report 6298037-3 (Version None)
Quarter: 2009Q3

REPORT INFORMATION
  Report Type: 
  Country: None (occurrence: None)
  Receive Date: 20090805
  Receipt Date: 20090730
  Transmission Date: 20100115
  Serious: Yes (Hospitalization)
  Sender: FDA-Public Use
  Company Number: US-ELI_LILLY_AND_COMPANY-US200907007088

PATIENT
  Sex: Female

DRUGS (3)
  1. HUMALOG MIX 75/25 [Suspect]
  2. NOVOLOG [Concomitant]
  3. LANTUS [Concomitant]

REACTIONS (10)
  - ANGINA PECTORIS [None]
  - BLOOD GLUCOSE DECREASED [None]
  - BLOOD GLUCOSE INCREASED [None]
  - CARDIAC DISORDER [None]
  - HOSPITALISATION [None]
  - HYPERTENSION [None]
  - MALAISE [None]
  - MEMORY IMPAIRMENT [None]
  - STRESS [None]
  - WEIGHT DECREASED [None]
